FAERS Safety Report 11086589 (Version 2)
Quarter: 2015Q2

REPORT INFORMATION
  Report Type: Report from Study
  Country: NL (occurrence: NL)
  Receive Date: 20150504
  Receipt Date: 20150617
  Transmission Date: 20150821
  Serious: Yes (Hospitalization)
  Sender: FDA-Public Use
  Company Number: NL-ROCHE-1571029

PATIENT
  Age: 60 Year
  Sex: Male

DRUGS (5)
  1. CAPECITABINE. [Suspect]
     Active Substance: CAPECITABINE
     Indication: GASTRIC CANCER
     Dosage: BID DAY 1-14?ON 26/MAY/2014, STARTED LAST DOSE OF TREATMENT
     Route: 048
     Dates: start: 20131105
  2. DOCETAXEL. [Suspect]
     Active Substance: DOCETAXEL
     Indication: GASTRIC CANCER
     Dosage: ON 18/FEB/2014, STARTED LAST DOSE OF TREATMENT
     Route: 042
     Dates: start: 20131105
  3. BEVACIZUMAB [Suspect]
     Active Substance: BEVACIZUMAB
     Indication: GASTRIC CANCER
     Dosage: ON 15/MAY/2014, STARTED LAST DOSE OF TREATMENT
     Route: 042
     Dates: start: 20131105
  4. TRASTUZUMAB [Suspect]
     Active Substance: TRASTUZUMAB
     Indication: GASTRIC CANCER
     Dosage: ON 18/FEB/2014, STARTED LAST DOSE OF TREATMENT
     Route: 042
     Dates: start: 20131105
  5. OXALIPLATIN. [Suspect]
     Active Substance: OXALIPLATIN
     Indication: GASTRIC CANCER
     Dosage: ON 18/FEB/2014, STARTED LAST DOSE OF TREATMENT
     Route: 042
     Dates: start: 20131105

REACTIONS (3)
  - Hyponatraemia [Recovered/Resolved]
  - Leukocytosis [Not Recovered/Not Resolved]
  - Pyrexia [Recovered/Resolved]

NARRATIVE: CASE EVENT DATE: 20140521
